FAERS Safety Report 4501674-7 (Version None)
Quarter: 2004Q4

REPORT INFORMATION
  Report Type: 
  Country: None (occurrence: None)
  Receive Date: 20041116
  Receipt Date: 20041104
  Transmission Date: 20050328
  Serious: Yes (Hospitalization)
  Sender: FDA-Public Use
  Company Number: ES-JNJFOC-20041007819

PATIENT
  Age: 64 Year
  Sex: Female

DRUGS (4)
  1. REMICADE [Suspect]
     Indication: RHEUMATOID ARTHRITIS
     Route: 042
  2. METHOTREXATE [Concomitant]
     Route: 049
  3. FOSAMAX [Concomitant]
     Route: 065
  4. FROSINOR [Concomitant]
     Route: 065

REACTIONS (4)
  - ARRHYTHMIA [None]
  - ATRIAL FIBRILLATION [None]
  - CONGESTIVE CARDIOMYOPATHY [None]
  - VENTRICULAR HYPERTROPHY [None]
